FAERS Safety Report 11796197 (Version 1)
Quarter: 2015Q4

REPORT INFORMATION
  Report Type: Spontaneous
  Country: US (occurrence: US)
  Receive Date: 20151203
  Receipt Date: 20151203
  Transmission Date: 20160305
  Serious: No
  Sender: FDA-Public Use
  Company Number: US-ELI_LILLY_AND_COMPANY-US201511007098

PATIENT
  Sex: Female
  Weight: 45 kg

DRUGS (2)
  1. FORTEO [Suspect]
     Active Substance: TERIPARATIDE
     Indication: OSTEOPOROSIS
     Dosage: UNK, QD
     Route: 065
     Dates: start: 20150815, end: 20151007
  2. SODIUM BENZOATE [Concomitant]
     Active Substance: SODIUM BENZOATE
     Indication: HYPERTENSION

REACTIONS (11)
  - Blood magnesium decreased [Unknown]
  - Decreased appetite [Unknown]
  - Hypercalcaemia [Unknown]
  - Hypokinesia [Unknown]
  - Blood electrolytes decreased [Unknown]
  - Blood sodium decreased [Unknown]
  - Asthenia [Recovered/Resolved]
  - Vitamin D decreased [Unknown]
  - Arthralgia [Unknown]
  - Constipation [Recovered/Resolved]
  - Back pain [Unknown]
